FAERS Safety Report 13523212 (Version 2)
Quarter: 2017Q3

REPORT INFORMATION
  Report Type: Spontaneous
  Country: FR (occurrence: FR)
  Receive Date: 20170508
  Receipt Date: 20170901
  Transmission Date: 20171127
  Serious: Yes (Other)
  Sender: FDA-Public Use
  Company Number: FR-PFIZER INC-2017198085

PATIENT
  Age: 36 Year

DRUGS (1)
  1. METHYLPREDNISOLONE SODIUM SUCCINATE. [Suspect]
     Active Substance: METHYLPREDNISOLONE SODIUM SUCCINATE
     Indication: ALOPECIA AREATA
     Dosage: 3 G, MONTHLY (EVERY MONTH)
     Route: 042

REACTIONS (1)
  - Drug-induced liver injury [Recovering/Resolving]
